FAERS Safety Report 25761584 (Version 7)
Quarter: 2025Q4

REPORT INFORMATION
  Report Type: Spontaneous
  Country: US (occurrence: US)
  Receive Date: 20250904
  Receipt Date: 20251008
  Transmission Date: 20260117
  Serious: No
  Sender: PFIZER
  Company Number: US-PFIZER INC-PV202500065990

PATIENT
  Age: 7 Year
  Sex: Female
  Weight: 20.862 kg

DRUGS (2)
  1. GENOTROPIN [Suspect]
     Active Substance: SOMATROPIN
     Indication: Short stature
     Dosage: 0.6 MG, EVERYDAY
     Route: 058
     Dates: start: 20250531
  2. GENOTROPIN [Suspect]
     Active Substance: SOMATROPIN
     Dosage: 0.7 MG, EVERYDAY
     Dates: start: 202507

REACTIONS (5)
  - Device use error [Unknown]
  - Device material issue [Unknown]
  - Device breakage [Unknown]
  - Drug dose omission by device [Unknown]
  - Product prescribing error [Unknown]

NARRATIVE: CASE EVENT DATE: 20250701
